FAERS Safety Report 6779496-6 (Version None)
Quarter: 2010Q2

REPORT INFORMATION
  Report Type: 
  Country: None (occurrence: None)
  Receive Date: 20100618
  Receipt Date: 20100617
  Transmission Date: 20101027
  Serious: Yes (Hospitalization)
  Sender: FDA-Public Use
  Company Number: IT-SANOFI-AVENTIS-2010SA034748

PATIENT
  Age: 60 Year
  Sex: Female

DRUGS (7)
  1. ELOXATIN [Suspect]
     Indication: COLON CANCER
     Route: 042
     Dates: start: 20100413, end: 20100413
  2. ELOXATIN [Suspect]
     Route: 042
     Dates: start: 20100511, end: 20100511
  3. FLUOROURACIL [Suspect]
     Indication: COLON CANCER
     Route: 042
     Dates: start: 20100413, end: 20100413
  4. FLUOROURACIL [Suspect]
     Route: 042
     Dates: start: 20100511, end: 20100511
  5. DEXAMETHASONE SODIUM PHOSPHATE [Concomitant]
     Indication: DRUG USE FOR UNKNOWN INDICATION
     Route: 065
  6. KYTRIL [Concomitant]
     Indication: DRUG USE FOR UNKNOWN INDICATION
     Route: 065
  7. PREFOLIC [Concomitant]
     Indication: DRUG USE FOR UNKNOWN INDICATION
     Route: 065

REACTIONS (2)
  - ACUTE CORONARY SYNDROME [None]
  - DYSPNOEA EXERTIONAL [None]
